FAERS Safety Report 5390896-1 (Version None)
Quarter: 2007Q3

REPORT INFORMATION
  Report Type: 
  Country: None (occurrence: None)
  Receive Date: 20070716
  Receipt Date: 20070626
  Transmission Date: 20080115
  Serious: Yes (Other)
  Sender: FDA-Public Use
  Company Number: 07H-163-0312864-00

PATIENT

DRUGS (1)
  1. LACTATED RINGER'S [Suspect]
     Dosage: TRANSPLACENTAL
     Route: 064
     Dates: start: 20060630, end: 20060630

REACTIONS (3)
  - CAESAREAN SECTION [None]
  - DRUG EXPOSURE DURING PREGNANCY [None]
  - FOETAL HEART RATE DECREASED [None]
